FAERS Safety Report 5457270-0 (Version None)
Quarter: 2007Q3

REPORT INFORMATION
  Report Type: 
  Country: None (occurrence: None)
  Receive Date: 20070918
  Receipt Date: 20070208
  Transmission Date: 20080115
  Serious: Yes (Hospitalization)
  Sender: FDA-Public Use
  Company Number: US-ASTRAZENECA-2007UW02647

PATIENT
  Sex: Female

DRUGS (5)
  1. SEROQUEL [Suspect]
     Route: 048
  2. LORAZEPAM [Concomitant]
  3. AZITHROMYCIN [Concomitant]
  4. POTASSIUM CHLORIDE [Concomitant]
  5. MECLIZINE [Concomitant]

REACTIONS (1)
  - GRAND MAL CONVULSION [None]
